FAERS Safety Report 10166753 (Version 1)
Quarter: 2014Q2

REPORT INFORMATION
  Report Type: Spontaneous
  Country: CH (occurrence: CH)
  Receive Date: 20140512
  Receipt Date: 20140512
  Transmission Date: 20141212
  Serious: Yes (Other)
  Sender: FDA-Public Use
  Company Number: CH-PFIZER INC-2014124740

PATIENT
  Age: 43 Year
  Sex: Male

DRUGS (1)
  1. VIBRAMYCIN [Suspect]
     Indication: BORRELIA INFECTION
     Dosage: UNK

REACTIONS (3)
  - Dermatomyositis [Recovered/Resolved]
  - Myalgia [Not Recovered/Not Resolved]
  - Arthralgia [Unknown]
